FAERS Safety Report 8166497-9 (Version None)
Quarter: 2012Q1

REPORT INFORMATION
  Report Type: 
  Country: None (occurrence: None)
  Receive Date: 20120227
  Receipt Date: 20111017
  Transmission Date: 20120608
  Serious: No
  Sender: FDA-Public Use
  Company Number: US-MYLANLABS-2011S1019789

PATIENT
  Age: 50 Year
  Sex: Female
  Weight: 102.06 kg

DRUGS (12)
  1. MINOCYCLINE HCL [Suspect]
     Route: 048
     Dates: start: 20020101, end: 20110101
  2. AMNESTEEM [Suspect]
     Indication: ACNE
     Route: 048
     Dates: start: 20110401
  3. ATENOLOL [Concomitant]
     Dates: start: 19990101, end: 20110101
  4. VITAMIN D [Concomitant]
     Dates: start: 20100101, end: 20110101
  5. IBUPROFEN [Concomitant]
  6. FISH OIL [Concomitant]
     Dates: start: 20100101, end: 20110101
  7. MINOCYCLINE HCL [Suspect]
     Indication: ACNE
     Route: 048
     Dates: start: 20000101, end: 20020101
  8. ASPIRIN [Concomitant]
     Dates: start: 20090101, end: 20110101
  9. VITAMIN B-12 [Concomitant]
     Dates: start: 20100101, end: 20110101
  10. M.V.I. [Concomitant]
     Dates: start: 20100101, end: 20110101
  11. PAXIL [Concomitant]
     Dates: start: 20070101, end: 20110101
  12. AMNESTEEM [Suspect]
     Route: 048
     Dates: end: 20110822

REACTIONS (1)
  - LIVER FUNCTION TEST ABNORMAL [None]
